FAERS Safety Report 6624090-0 (Version None)
Quarter: 2010Q1

REPORT INFORMATION
  Report Type: 
  Country: None (occurrence: None)
  Receive Date: 20100310
  Receipt Date: 20100302
  Transmission Date: 20100710
  Serious: Yes (Other)
  Sender: FDA-Public Use
  Company Number: US-PFIZER INC-2010014871

PATIENT
  Sex: Female
  Weight: 90.249 kg

DRUGS (12)
  1. LIPITOR [Suspect]
     Indication: BLOOD CHOLESTEROL
     Dosage: 40 MG, 1X/DAY
     Dates: start: 20080501, end: 20100201
  2. PLAVIX [Concomitant]
     Dosage: 75 MG, 1X/DAY
  3. METOPROLOL [Concomitant]
     Dosage: 25 MG, 1X/DAY
  4. LISINOPRIL [Concomitant]
     Dosage: 20 MG, 1X/DAY
  5. METFORMIN [Concomitant]
     Dosage: 100 MG, 2X/DAY
  6. FLEXERIL [Concomitant]
     Dosage: 10 MG, 2X/DAY
  7. KETOROLAC TROMETHAMINE [Concomitant]
     Dosage: 400 MG, 2X/DAY
  8. CALCIUM WITH VITAMIN D [Concomitant]
     Dosage: 600 MG, 2X/DAY
  9. VITAMIN B-12 [Concomitant]
     Dosage: 500 MG, 1X/DAY
  10. VITAMIN D [Concomitant]
     Dosage: 50,000   1.5 TWICE WEEKLY
  11. COD-LIVER OIL [Concomitant]
     Dosage: UNK
  12. FISH OIL [Concomitant]
     Dosage: 3 TABS EVERY DAY

REACTIONS (1)
  - MYALGIA [None]
